FAERS Safety Report 8133865-0 (Version None)
Quarter: 2012Q1

REPORT INFORMATION
  Report Type: 
  Country: None (occurrence: None)
  Receive Date: 20120213
  Receipt Date: 20120208
  Transmission Date: 20120608
  Serious: Yes (Other)
  Sender: FDA-Public Use
  Company Number: IT-MERCK-1202ITA00010

PATIENT
  Age: 80 Year
  Sex: Female

DRUGS (2)
  1. SINEMET [Suspect]
     Route: 065
  2. BENSERAZIDE HYDROCHLORIDE AND LEVODOPA [Suspect]
     Route: 065

REACTIONS (2)
  - BONE MARROW FAILURE [None]
  - LEUKOPENIA [None]
